FAERS Safety Report 19479940 (Version 1)
Quarter: 2021Q2

REPORT INFORMATION
  Report Type: Spontaneous
  Country: DE (occurrence: DE)
  Receive Date: 20210630
  Receipt Date: 20210630
  Transmission Date: 20210717
  Serious: Yes (Other)
  Sender: FDA-Public Use
  Company Number: DE-BAYER-2021-163322

PATIENT

DRUGS (5)
  1. NEXAVAR [Suspect]
     Active Substance: SORAFENIB
     Dosage: 400 MG, BID (2?0?2)
     Dates: start: 201912, end: 202002
  2. NEXAVAR [Suspect]
     Active Substance: SORAFENIB
     Dosage: 600 MG, (1?0?2)
  3. NEXAVAR [Suspect]
     Active Substance: SORAFENIB
     Dosage: 200 MG, BID (1?0?1)
  4. NEXAVAR [Suspect]
     Active Substance: SORAFENIB
     Dosage: 200 MG, BID (1?0?1)
  5. NEXAVAR [Suspect]
     Active Substance: SORAFENIB
     Dosage: 600 MG, (2?0?1)
     Dates: start: 202002, end: 202003

REACTIONS (4)
  - Abdominal pain [None]
  - Palmar-plantar erythrodysaesthesia syndrome [None]
  - Nausea [None]
  - Abscess drainage [None]

NARRATIVE: CASE EVENT DATE: 202002
